FAERS Safety Report 25159344 (Version 1)
Quarter: 2025Q2

REPORT INFORMATION
  Report Type: Spontaneous
  Country: US (occurrence: US)
  Receive Date: 20250404
  Receipt Date: 20250404
  Transmission Date: 20250717
  Serious: No
  Sender: BAXTER
  Company Number: US-BAXTER-2025BAX013376

PATIENT

DRUGS (1)
  1. NOREPINEPHRINE BITARTRATE [Suspect]
     Active Substance: NOREPINEPHRINE BITARTRATE
     Route: 065
     Dates: start: 20250303

REACTIONS (2)
  - Blood pressure decreased [Recovering/Resolving]
  - Device infusion issue [Unknown]

NARRATIVE: CASE EVENT DATE: 20250303
